FAERS Safety Report 16544415 (Version 2)
Quarter: 2019Q3

REPORT INFORMATION
  Report Type: Spontaneous
  Country: US (occurrence: US)
  Receive Date: 20190709
  Receipt Date: 20190729
  Transmission Date: 20191004
  Serious: No
  Sender: FDA-Public Use
  Company Number: US-PFIZER INC-2019269879

PATIENT
  Age: 63 Year
  Sex: Male
  Weight: 71.67 kg

DRUGS (3)
  1. RAPAMUNE [Suspect]
     Active Substance: SIROLIMUS
     Indication: HEART TRANSPLANT
     Dosage: 1 MG, DAILY
     Route: 048
     Dates: start: 20190501
  2. RAPAMUNE [Suspect]
     Active Substance: SIROLIMUS
     Dosage: 4 DF, 1X/DAY
     Route: 048
     Dates: start: 201906
  3. RAPAMUNE [Suspect]
     Active Substance: SIROLIMUS
     Dosage: 1 MG, DAILY
     Route: 048

REACTIONS (5)
  - Product use in unapproved indication [Unknown]
  - Drug level below therapeutic [Unknown]
  - Rash [Recovering/Resolving]
  - Off label use [Unknown]
  - Skin lesion [Unknown]

NARRATIVE: CASE EVENT DATE: 201907
